FAERS Safety Report 4565521-X (Version None)
Quarter: 2005Q1

REPORT INFORMATION
  Report Type: 
  Country: None (occurrence: None)
  Receive Date: 20050131
  Receipt Date: 20050122
  Transmission Date: 20050727
  Serious: Yes (Other)
  Sender: FDA-Public Use
  Company Number: GB-GLAXOSMITHKLINE-B0365371A

PATIENT
  Age: 53 Year
  Sex: Male
  Weight: 54 kg

DRUGS (3)
  1. ZYBAN [Suspect]
     Dosage: 150MG TWICE PER DAY
     Route: 048
     Dates: start: 20041123
  2. PROPRANOLOL HYDROCHLORIDE [Concomitant]
     Indication: ANXIETY
     Dosage: 80MG PER DAY
     Route: 065
     Dates: start: 20020923
  3. ESCITALOPRAM [Concomitant]
     Indication: DEPRESSION
     Dosage: 10MG PER DAY
     Route: 065
     Dates: start: 20040623

REACTIONS (2)
  - DEPRESSION [None]
  - LETHARGY [None]
